FAERS Safety Report 19657490 (Version 1)
Quarter: 2021Q3

REPORT INFORMATION
  Report Type: Report from Study
  Country: None (occurrence: BR)
  Receive Date: 20210804
  Receipt Date: 20210804
  Transmission Date: 20211014
  Serious: Yes (Other)
  Sender: FDA-Public Use
  Company Number: BR-ABBVIE-21K-020-4018965-00

PATIENT
  Sex: Female
  Weight: 57 kg

DRUGS (5)
  1. HUMIRA [Suspect]
     Active Substance: ADALIMUMAB
     Indication: ANKYLOSING SPONDYLITIS
     Route: 058
     Dates: start: 201911
  2. HUMIRA [Suspect]
     Active Substance: ADALIMUMAB
     Route: 058
  3. HUMIRA [Suspect]
     Active Substance: ADALIMUMAB
     Route: 058
     Dates: end: 202105
  4. ASTRAZENECA COVID?19 VACCINE [Suspect]
     Active Substance: AZD-1222
     Indication: COVID-19 IMMUNISATION
     Dosage: ASTRAZENECA
     Route: 030
     Dates: start: 2021, end: 2021
  5. SULFASALAZINE. [Concomitant]
     Active Substance: SULFASALAZINE
     Indication: ANKYLOSING SPONDYLITIS

REACTIONS (12)
  - Haemoptysis [Unknown]
  - Oropharyngeal discomfort [Unknown]
  - Illness [Unknown]
  - Oral discharge [Unknown]
  - Arthralgia [Unknown]
  - Mouth haemorrhage [Unknown]
  - Back pain [Unknown]
  - Dysgeusia [Unknown]
  - Pulmonary fibrosis [Unknown]
  - Tuberculosis [Unknown]
  - Cough [Unknown]
  - Pulmonary mass [Unknown]

NARRATIVE: CASE EVENT DATE: 2020
